FAERS Safety Report 9940525 (Version 1)
Quarter: 2014Q1

REPORT INFORMATION
  Report Type: Report from Study
  Country: DE (occurrence: DE)
  Receive Date: 20140303
  Receipt Date: 20140303
  Transmission Date: 20141002
  Serious: Yes (Other)
  Sender: FDA-Public Use
  Company Number: DE-SA-2014SA022038

PATIENT
  Age: 61 Year
  Sex: Female
  Weight: 114 kg

DRUGS (8)
  1. MULTAQ [Suspect]
     Indication: ATRIAL FIBRILLATION
     Route: 048
     Dates: start: 20120718
  2. BETA BLOCKING AGENTS [Concomitant]
     Indication: ATRIAL FIBRILLATION
     Dates: start: 200703, end: 201207
  3. BETA BLOCKING AGENTS [Concomitant]
     Indication: ATRIAL FIBRILLATION
     Dates: start: 201209
  4. ANTIARRHYTHMICS, CLASS I AND III [Concomitant]
     Indication: ATRIAL FIBRILLATION
  5. RAMIPRIL [Concomitant]
  6. HYDROCHLOROTHIAZIDE [Concomitant]
  7. PLATELET AGGREGATION INHIBITORS [Concomitant]
     Indication: THROMBOSIS PROPHYLAXIS
  8. VIT K ANTAGONISTS [Concomitant]
     Indication: ANTICOAGULANT THERAPY
     Route: 048

REACTIONS (1)
  - Atrial fibrillation [Unknown]
